FAERS Safety Report 9237104 (Version 2)
Quarter: 2013Q2

REPORT INFORMATION
  Report Type: Spontaneous
  Country: US (occurrence: US)
  Receive Date: 20130417
  Receipt Date: 20130513
  Transmission Date: 20140414
  Serious: Yes (Life-Threatening, Hospitalization, Other)
  Sender: FDA-Public Use
  Company Number: US-GLAXOSMITHKLINE-A1019602A

PATIENT
  Age: 50 Year
  Sex: Female
  Weight: 108.2 kg

DRUGS (22)
  1. BENLYSTA [Suspect]
     Indication: SYSTEMIC LUPUS ERYTHEMATOSUS
     Dosage: 10MGK MONTHLY
     Route: 042
     Dates: start: 201112, end: 20130322
  2. PREDNISONE [Concomitant]
  3. HYDROXYCHLOROQUINE SULFATE [Concomitant]
  4. ALENDRONATE SODIUM [Concomitant]
  5. CYMBALTA [Concomitant]
  6. LYRICA [Concomitant]
  7. ALIGN [Concomitant]
  8. CEFDINIR [Concomitant]
  9. CETIRIZINE [Concomitant]
  10. METOPROLOL [Concomitant]
  11. TRAMADOL [Concomitant]
  12. FOSINOPRIL [Concomitant]
  13. MICRO-K 10 [Concomitant]
  14. DURAGESIC [Concomitant]
  15. FUROSEMIDE [Concomitant]
  16. GLIPIZIDE [Concomitant]
  17. GUANFACINE [Concomitant]
  18. JANUVIA [Concomitant]
  19. METFORMIN [Concomitant]
  20. OMEPRAZOLE [Concomitant]
  21. VITAMIN D2 [Concomitant]
  22. CIPRO [Concomitant]

REACTIONS (3)
  - Pneumococcal infection [Recovered/Resolved]
  - Urinary tract infection [Recovered/Resolved]
  - Urosepsis [Recovered/Resolved]
